FAERS Safety Report 6529058-0 (Version None)
Quarter: 2010Q1

REPORT INFORMATION
  Report Type: 
  Country: None (occurrence: None)
  Receive Date: 20100106
  Receipt Date: 20091228
  Transmission Date: 20100710
  Serious: Yes (Hospitalization)
  Sender: FDA-Public Use
  Company Number: FR-PFIZER INC-2009315299

PATIENT
  Age: 57 Year
  Sex: Male

DRUGS (3)
  1. XANAX [Suspect]
     Dosage: UNK
     Route: 048
     Dates: start: 20090601, end: 20090725
  2. TERCIAN [Suspect]
     Dosage: 1 DF
     Route: 048
     Dates: start: 20090601, end: 20090725
  3. MEPRONIZINE [Suspect]
     Dosage: 1DF PER DAY
     Route: 048
     Dates: start: 20090601, end: 20090725

REACTIONS (1)
  - AGRANULOCYTOSIS [None]
